FAERS Safety Report 10007868 (Version 2)
Quarter: 2014Q1

REPORT INFORMATION
  Report Type: Spontaneous
  Country: US (occurrence: US)
  Receive Date: 20140313
  Receipt Date: 20140313
  Transmission Date: 20141002
  Serious: No
  Sender: FDA-Public Use
  Company Number: US-GILEAD-2013-0070024

PATIENT
  Age: 66 Year
  Sex: Female

DRUGS (1)
  1. LETAIRIS [Suspect]
     Indication: PRODUCT USED FOR UNKNOWN INDICATION
     Dosage: 5 MG, UNK
     Route: 048
     Dates: start: 20130205, end: 20130302

REACTIONS (6)
  - Blood glucose increased [Unknown]
  - Muscle spasms [Recovered/Resolved]
  - Headache [Recovered/Resolved]
  - Nasopharyngitis [Unknown]
  - Dyspnoea [Recovered/Resolved]
  - Oedema peripheral [Unknown]
